FAERS Safety Report 19888997 (Version 1)
Quarter: 2021Q3

REPORT INFORMATION
  Report Type: Spontaneous
  Country: US (occurrence: US)
  Receive Date: 20210928
  Receipt Date: 20210928
  Transmission Date: 20211014
  Serious: Yes (Other)
  Sender: FDA-Public Use
  Company Number: None

PATIENT
  Age: 35 Year
  Sex: Female

DRUGS (1)
  1. CASIRIVIMAB AND IMDEVIMAB [Suspect]
     Active Substance: CASIRIVIMAB\IMDEVIMAB
     Indication: COVID-19
     Dates: start: 20210922, end: 20210922

REACTIONS (6)
  - Tachypnoea [None]
  - Throat irritation [None]
  - Infusion related reaction [None]
  - Tachycardia [None]
  - Flushing [None]
  - Hypertension [None]

NARRATIVE: CASE EVENT DATE: 20210922
